FAERS Safety Report 14698185 (Version 2)
Quarter: 2018Q2

REPORT INFORMATION
  Report Type: Report from Study
  Country: GB (occurrence: GB)
  Receive Date: 20180330
  Receipt Date: 20180424
  Transmission Date: 20180711
  Serious: Yes (Hospitalization)
  Sender: FDA-Public Use
  Company Number: GB-ROCHE-2097805

PATIENT
  Age: 63 Year
  Sex: Male

DRUGS (1)
  1. ROACTEMRA [Suspect]
     Active Substance: TOCILIZUMAB
     Indication: RHEUMATOID ARTHRITIS
     Route: 058
     Dates: start: 20171221

REACTIONS (2)
  - Malaise [Not Recovered/Not Resolved]
  - Oral disorder [Recovering/Resolving]

NARRATIVE: CASE EVENT DATE: 201801
